FAERS Safety Report 8511680-3 (Version None)
Quarter: 2012Q3

REPORT INFORMATION
  Report Type: 
  Country: None (occurrence: None)
  Receive Date: 20120710
  Receipt Date: 20120710
  Transmission Date: 20120928
  Serious: Yes (Death, Hospitalization)
  Sender: FDA-Public Use
  Company Number: None

PATIENT
  Sex: Male
  Weight: 97.7 kg

DRUGS (2)
  1. FLUDARABINE PHOSPHATE [Suspect]
     Dosage: 250 MG
     Dates: end: 20120629
  2. RITUXIMAB (MOAB C2B8 ANTI CD20, CHIMERIC) [Suspect]
     Dosage: 800 MG
     Dates: end: 20120625

REACTIONS (9)
  - HAEMOLYTIC ANAEMIA [None]
  - RESPIRATORY DISTRESS [None]
  - FLUID OVERLOAD [None]
  - RENAL FAILURE ACUTE [None]
  - ABDOMINAL PAIN UPPER [None]
  - RESTLESSNESS [None]
  - HYPERKALAEMIA [None]
  - BODY TEMPERATURE INCREASED [None]
  - AGITATION [None]
